FAERS Safety Report 13831585 (Version 1)
Quarter: 2017Q3

REPORT INFORMATION
  Report Type: Spontaneous
  Country: US (occurrence: US)
  Receive Date: 20170803
  Receipt Date: 20170803
  Transmission Date: 20171127
  Serious: Yes (Other)
  Sender: FDA-Public Use
  Company Number: US-TAKEDA-2017TUS015899

PATIENT
  Sex: Female
  Weight: 70.3 kg

DRUGS (3)
  1. ENTYVIO [Suspect]
     Active Substance: VEDOLIZUMAB
     Indication: COLITIS ULCERATIVE
     Dosage: UNK
     Route: 042
     Dates: start: 201503
  2. WELLBUTRIN [Concomitant]
     Active Substance: BUPROPION HYDROCHLORIDE
     Indication: FIBROMYALGIA
     Dosage: 100 MG, BID
     Route: 048
     Dates: start: 201509
  3. RESTORA [Concomitant]
     Indication: COLITIS ULCERATIVE
     Dosage: UNK UNK, QD
     Route: 048
     Dates: start: 201503

REACTIONS (6)
  - Weight decreased [Unknown]
  - Fatigue [Not Recovered/Not Resolved]
  - Hysterectomy [Recovered/Resolved]
  - Memory impairment [Not Recovered/Not Resolved]
  - Fibromyalgia [Unknown]
  - Infectious mononucleosis [Unknown]

NARRATIVE: CASE EVENT DATE: 2015
